FAERS Safety Report 19259196 (Version 4)
Quarter: 2022Q4

REPORT INFORMATION
  Report Type: Spontaneous
  Country: CA (occurrence: CA)
  Receive Date: 20210514
  Receipt Date: 20221031
  Transmission Date: 20230113
  Serious: Yes (Hospitalization, Other)
  Sender: FDA-Public Use
  Company Number: CA-BAXTER-2021BAX010119

PATIENT
  Age: 49 Year
  Sex: Female

DRUGS (30)
  1. NOREPINEPHRINE BITARTRATE [Interacting]
     Active Substance: NOREPINEPHRINE BITARTRATE
     Indication: Hypotension
     Route: 065
  2. SEVOFLURANE [Interacting]
     Active Substance: SEVOFLURANE
     Indication: Maintenance of anaesthesia
     Dosage: DOSAGE FORM: LIQUID INHALATION
  3. SEVOFLURANE [Interacting]
     Active Substance: SEVOFLURANE
     Indication: Depression
  4. SEVOFLURANE [Interacting]
     Active Substance: SEVOFLURANE
     Indication: Anxiety
  5. PROPOFOL [Interacting]
     Active Substance: PROPOFOL
     Indication: Induction of anaesthesia
     Dosage: 9.0 MG/KG
     Route: 065
  6. CLONAZEPAM [Interacting]
     Active Substance: CLONAZEPAM
     Indication: Depression
     Dosage: 0.5 MILLIGRAMS (MG)
     Route: 048
  7. CLONAZEPAM [Interacting]
     Active Substance: CLONAZEPAM
     Indication: Anxiety
     Dosage: 1 MILLIGRAM (MG)
     Route: 065
  8. CLONAZEPAM [Interacting]
     Active Substance: CLONAZEPAM
     Dosage: 0.5 MILLIGRAMS (MG)
     Route: 065
  9. DIAZEPAM [Interacting]
     Active Substance: DIAZEPAM
     Indication: Preoperative care
     Dosage: 10 MILLIGRAMS (MG), DOSAGE FORM WAS NOT SPECIFIED
     Route: 065
  10. FENTANYL [Interacting]
     Active Substance: FENTANYL
     Indication: Anaesthesia procedure
     Dosage: 13 UG/KG
     Route: 042
  11. FLUVOXAMINE [Interacting]
     Active Substance: FLUVOXAMINE
     Indication: Product used for unknown indication
     Route: 065
  12. MEPERIDINE [Interacting]
     Active Substance: MEPERIDINE
     Indication: Product used for unknown indication
     Dosage: DOSAGE FORM WAS NOT SPECIFIED
     Route: 065
  13. METHYLENE BLUE [Interacting]
     Active Substance: METHYLENE BLUE
     Indication: Hypotension
     Dosage: 1 MG/KG, DOSAGE FORM WAS NOT REPORTED
     Route: 065
  14. METHYLENE BLUE [Interacting]
     Active Substance: METHYLENE BLUE
     Indication: Anaesthesia procedure
  15. MIDAZOLAM [Interacting]
     Active Substance: MIDAZOLAM
     Indication: Anaesthesia procedure
     Dosage: 0.3 UG/KG
     Route: 065
  16. PAROXETINE [Interacting]
     Active Substance: PAROXETINE
     Indication: Depression
     Dosage: 40 MILLIGRAMS (MG)
     Route: 065
  17. PAROXETINE [Interacting]
     Active Substance: PAROXETINE
     Indication: Anxiety
  18. QUETIAPINE [Interacting]
     Active Substance: QUETIAPINE
     Indication: Depression
     Dosage: 25 MILLIGRAM (1 EVERY 1 DAY)
     Route: 065
  19. QUETIAPINE [Interacting]
     Active Substance: QUETIAPINE
     Indication: Anxiety
     Dosage: 50 MILLIGRAMS (1 EVERY 1 DAY)
     Route: 065
  20. ROCURONIUM [Interacting]
     Active Substance: ROCURONIUM BROMIDE
     Indication: Hypotonia
     Dosage: 1 MG/KG
     Route: 065
  21. ROCURONIUM [Interacting]
     Active Substance: ROCURONIUM BROMIDE
     Indication: Depression
  22. ROCURONIUM [Interacting]
     Active Substance: ROCURONIUM BROMIDE
     Indication: Anxiety
  23. MIDAZOLAM HYDROCHLORIDE [Interacting]
     Active Substance: MIDAZOLAM HYDROCHLORIDE
     Indication: Hypotension
     Dosage: 0.3 UG/KG
     Route: 065
  24. MIDAZOLAM HYDROCHLORIDE [Interacting]
     Active Substance: MIDAZOLAM HYDROCHLORIDE
     Indication: Anaesthesia procedure
  25. NOREPINEPHRINE [Interacting]
     Active Substance: NOREPINEPHRINE
     Indication: Hypotension
     Dosage: DOSAGE FORM WAS NOT SPECIFIED
     Route: 065
  26. PAROXETINE HYDROCHLORIDE [Interacting]
     Active Substance: PAROXETINE HYDROCHLORIDE
     Indication: Depression
     Dosage: 40 MILLIGRAMS (MG)
     Route: 065
  27. PAROXETINE HYDROCHLORIDE [Interacting]
     Active Substance: PAROXETINE HYDROCHLORIDE
     Indication: Anxiety
  28. QUETIAPINE FUMARATE [Interacting]
     Active Substance: QUETIAPINE FUMARATE
     Indication: Depression
     Dosage: 25 MILLIGRAMS (2 EVERY 1 DAYS) OR (1 EVERY 12 HOURS)
     Route: 065
  29. QUETIAPINE FUMARATE [Interacting]
     Active Substance: QUETIAPINE FUMARATE
     Indication: Anxiety
  30. QUETIAPINE FUMARATE [Interacting]
     Active Substance: QUETIAPINE FUMARATE
     Indication: Hypotension
     Dosage: UNK
     Route: 048

REACTIONS (12)
  - Serotonin syndrome [Recovered/Resolved]
  - Toxic encephalopathy [Recovered/Resolved]
  - Troponin increased [Recovered/Resolved]
  - Amylase increased [Recovered/Resolved]
  - Drug interaction [Recovered/Resolved]
  - Blood creatine phosphokinase increased [Recovered/Resolved]
  - Myoglobin urine present [Recovered/Resolved]
  - Drug level below therapeutic [Recovered/Resolved]
  - Alanine aminotransferase increased [Recovered/Resolved]
  - Blood lactate dehydrogenase increased [Recovered/Resolved]
  - Blood potassium increased [Recovered/Resolved]
  - Hypotension [Recovered/Resolved]
